FAERS Safety Report 16053465 (Version 1)
Quarter: 2019Q1

REPORT INFORMATION
  Report Type: Spontaneous
  Country: RS (occurrence: RS)
  Receive Date: 20190308
  Receipt Date: 20190308
  Transmission Date: 20190418
  Serious: Yes (Other)
  Sender: FDA-Public Use
  Company Number: RS-MYLANLABS-2019M1021296

PATIENT
  Age: 74 Year
  Sex: Male

DRUGS (1)
  1. EFUDIX [Suspect]
     Active Substance: FLUOROURACIL
     Indication: BASAL CELL CARCINOMA
     Dosage: 5 PERCENT
     Dates: start: 2008

REACTIONS (1)
  - Drug ineffective [Unknown]

NARRATIVE: CASE EVENT DATE: 2008
